FAERS Safety Report 10362717 (Version 1)
Quarter: 2014Q3

REPORT INFORMATION
  Report Type: Spontaneous
  Country: US (occurrence: None)
  Receive Date: 20140804
  Receipt Date: 20140804
  Transmission Date: 20150326
  Serious: Yes (Hospitalization)
  Sender: FDA-Public Use
  Company Number: None

PATIENT
  Age: 58 Year
  Sex: Male
  Weight: 77.11 kg

DRUGS (6)
  1. CLOZAPINE. [Suspect]
     Active Substance: CLOZAPINE
     Indication: PSYCHOTIC DISORDER
     Route: 048
  2. LAMOTRIGINE. [Concomitant]
     Active Substance: LAMOTRIGINE
  3. ACETAZOLAMIDE (DIAMOX) [Concomitant]
  4. RISPERIDONE. [Concomitant]
     Active Substance: RISPERIDONE
  5. CLOMIPRAMINE [Concomitant]
     Active Substance: CLOMIPRAMINE
  6. LEVETIRACETAM (KEPPRA) [Concomitant]

REACTIONS (2)
  - Abdominal distension [None]
  - Ileus [None]

NARRATIVE: CASE EVENT DATE: 20140731
